FAERS Safety Report 4942479-2 (Version None)
Quarter: 2006Q1

REPORT INFORMATION
  Report Type: 
  Country: None (occurrence: None)
  Receive Date: 20060313
  Receipt Date: 20050308
  Transmission Date: 20060701
  Serious: No
  Sender: FDA-Public Use
  Company Number: US-GLAXOSMITHKLINE-A0548771A

PATIENT

DRUGS (3)
  1. NICORETTE [Suspect]
  2. NICORETTE [Suspect]
     Dates: start: 19970415
  3. WELLBUTRIN [Concomitant]

REACTIONS (5)
  - ANXIETY [None]
  - DRUG ABUSER [None]
  - DRUG WITHDRAWAL SYNDROME [None]
  - NIGHTMARE [None]
  - WEIGHT INCREASED [None]
